FAERS Safety Report 4518881-X (Version None)
Quarter: 2004Q4

REPORT INFORMATION
  Report Type: 
  Country: None (occurrence: None)
  Receive Date: 20041206
  Receipt Date: 20041026
  Transmission Date: 20050328
  Serious: Yes (Other)
  Sender: FDA-Public Use
  Company Number: IE-BRISTOL-MYERS SQUIBB COMPANY-12748760

PATIENT

DRUGS (1)
  1. MEGACE [Suspect]
     Indication: CACHEXIA

REACTIONS (2)
  - CEREBROVASCULAR DISORDER [None]
  - PULMONARY EMBOLISM [None]
